FAERS Safety Report 8022592-6 (Version None)
Quarter: 2012Q1

REPORT INFORMATION
  Report Type: 
  Country: None (occurrence: None)
  Receive Date: 20120104
  Receipt Date: 20111228
  Transmission Date: 20120608
  Serious: Yes (Hospitalization)
  Sender: FDA-Public Use
  Company Number: US-GLAXOSMITHKLINE-A0959694A

PATIENT
  Age: 41 Year
  Sex: Female
  Weight: 81 kg

DRUGS (2)
  1. FLOLAN [Suspect]
     Indication: PULMONARY ARTERIAL HYPERTENSION
     Dosage: 50NGKM UNKNOWN
     Route: 065
     Dates: start: 20110602
  2. PHENYTOIN [Suspect]
     Route: 065

REACTIONS (5)
  - EYELID DISORDER [None]
  - ANTICONVULSANT DRUG LEVEL DECREASED [None]
  - VISION BLURRED [None]
  - OPHTHALMOPLEGIA [None]
  - DIPLOPIA [None]
